FAERS Safety Report 6100398-2 (Version None)
Quarter: 2009Q1

REPORT INFORMATION
  Report Type: 
  Country: None (occurrence: None)
  Receive Date: 20090226
  Receipt Date: 20090212
  Transmission Date: 20090719
  Serious: Yes (Other)
  Sender: FDA-Public Use
  Company Number: 430009K09USA

PATIENT
  Age: 51 Year
  Sex: Female

DRUGS (2)
  1. NOVANTRONE [Suspect]
     Indication: MULTIPLE SCLEROSIS
     Dates: start: 20081212
  2. AVONEX (INTERFERON BETA)` [Concomitant]

REACTIONS (3)
  - CHEST PAIN [None]
  - GASTRIC ULCER HAEMORRHAGE [None]
  - HAEMOPTYSIS [None]
